FAERS Safety Report 8697276 (Version 2)
Quarter: 2014Q3

REPORT INFORMATION
  Report Type: Spontaneous
  Country: US (occurrence: US)
  Receive Date: 20120801
  Receipt Date: 20140923
  Transmission Date: 20150326
  Serious: Yes (Death, Hospitalization)
  Sender: FDA-Public Use
  Company Number: US-GLAXOSMITHKLINE-A0758398A

PATIENT
  Sex: Female
  Weight: 68.2 kg

DRUGS (1)
  1. AVANDIA [Suspect]
     Active Substance: ROSIGLITAZONE MALEATE
     Indication: TYPE 1 DIABETES MELLITUS
     Dosage: 4MG PER DAY
     Route: 065
     Dates: start: 20060501, end: 20080201

REACTIONS (7)
  - Acute myocardial infarction [Fatal]
  - Cardiac failure congestive [Unknown]
  - Nephritic syndrome [Fatal]
  - Renal failure chronic [Unknown]
  - Renal impairment [Unknown]
  - Gait disturbance [Unknown]
  - Cerebrovascular accident [Unknown]
